FAERS Safety Report 7411592-2 (Version None)
Quarter: 2011Q2

REPORT INFORMATION
  Report Type: 
  Country: None (occurrence: None)
  Receive Date: 20110413
  Receipt Date: 20100928
  Transmission Date: 20111010
  Serious: No
  Sender: FDA-Public Use
  Company Number: US-BRISTOL-MYERS SQUIBB COMPANY-15294929

PATIENT
  Age: 72 Year
  Sex: Male

DRUGS (6)
  1. PROPRANOLOL [Concomitant]
  2. MAGNESIUM [Concomitant]
  3. ERBITUX [Suspect]
  4. POTASSIUM [Concomitant]
  5. CALCIUM [Concomitant]
  6. PREVACID [Concomitant]

REACTIONS (3)
  - PARAESTHESIA [None]
  - MUSCLE SPASMS [None]
  - PERIPHERAL COLDNESS [None]
